FAERS Safety Report 8796548 (Version 1)
Quarter: 2012Q4

REPORT INFORMATION
  Report Type: 
  Country: IL (occurrence: IL)
  Receive Date: 20120920
  Receipt Date: 20120920
  Transmission Date: 20130627
  Serious: Yes (Other)
  Sender: FDA-Public Use
  Company Number: PHHY2012IL079622

PATIENT
  Age: 34 Year
  Sex: Male

DRUGS (3)
  1. IMATINIB [Suspect]
     Indication: CHRONIC MYELOID LEUKAEMIA
     Dosage: 400 mg per day
  2. NILOTINIB [Suspect]
     Indication: CHRONIC MYELOID LEUKAEMIA
     Dosage: 400 mg, BID
  3. NILOTINIB [Suspect]
     Dosage: 200 mg, BID

REACTIONS (7)
  - Autoimmune thrombocytopenia [Not Recovered/Not Resolved]
  - Bone marrow failure [Unknown]
  - Viral infection [Unknown]
  - Drug resistance [Unknown]
  - Drug intolerance [Unknown]
  - Therapeutic response decreased [Unknown]
  - Influenza like illness [Unknown]
